FAERS Safety Report 24075708 (Version 3)
Quarter: 2024Q3

REPORT INFORMATION
  Report Type: Report from Study
  Country: ES (occurrence: ES)
  Receive Date: 20240710
  Receipt Date: 20240902
  Transmission Date: 20241016
  Serious: Yes (Other)
  Sender: PFIZER
  Company Number: ES-ROCHE-10000003814

PATIENT
  Age: 80 Year
  Sex: Female

DRUGS (3)
  1. CARBOPLATIN [Suspect]
     Active Substance: CARBOPLATIN
     Indication: Neoplasm
     Dosage: 300 MG, EVERY 3 WEEKS
     Route: 042
     Dates: start: 20230210, end: 20230316
  2. ABRAXANE [Suspect]
     Active Substance: PACLITAXEL
     Indication: Neoplasm
     Dosage: 110 MG, EVERY 3 WEEKS
     Route: 042
     Dates: start: 20230222, end: 20230323
  3. PEMBROLIZUMAB [Suspect]
     Active Substance: PEMBROLIZUMAB
     Indication: Neoplasm
     Dosage: 200 MG, EVERY 3 WEEKS
     Route: 042
     Dates: start: 20230210, end: 20230414

REACTIONS (2)
  - Immunotoxicity [Recovered/Resolved]
  - Toxicity to various agents [Recovered/Resolved]

NARRATIVE: CASE EVENT DATE: 20230413
